FAERS Safety Report 5570201-8 (Version None)
Quarter: 2007Q4

REPORT INFORMATION
  Report Type: 
  Country: None (occurrence: None)
  Receive Date: 20071217
  Receipt Date: 20071206
  Transmission Date: 20080405
  Serious: Yes (Hospitalization)
  Sender: FDA-Public Use
  Company Number: 230054J07CAN

PATIENT
  Sex: Female

DRUGS (5)
  1. REBIF [Suspect]
     Indication: MULTIPLE SCLEROSIS
     Dosage: RELAPSING-REMITTING MULTIPLE SCLEROSIS
     Dates: start: 20060111, end: 20070101
  2. MODAFINIL [Concomitant]
  3. ORAL CONTRACEPTIVE NOS [Concomitant]
  4. VITAMIN CAP [Concomitant]
  5. IBUPROFEN [Concomitant]

REACTIONS (1)
  - PANCREATITIS [None]
